FAERS Safety Report 5130885-5 (Version None)
Quarter: 2006Q4

REPORT INFORMATION
  Report Type: 
  Country: None (occurrence: None)
  Receive Date: 20061013
  Receipt Date: 20060801
  Transmission Date: 20070319
  Serious: Yes (Death, Hospitalization)
  Sender: FDA-Public Use
  Company Number: 2283

PATIENT
  Age: 77 Year
  Sex: Male

DRUGS (11)
  1. ONTAK [Suspect]
     Indication: MYCOSIS FUNGOIDES
     Dates: start: 20060724, end: 20060729
  2. ATORVASTATIN CALCIUM [Concomitant]
  3. BEXAROTENE [Concomitant]
  4. DEXAMETHASONE [Concomitant]
  5. DOXAZOSIN MESYLATE [Concomitant]
  6. FUROSEMIDE [Concomitant]
  7. LEVOFLOXACIN [Concomitant]
  8. LEVOTHYROXINE SODIUM [Concomitant]
  9. LISINOPRIL [Concomitant]
  10. METOPROLOL TARTRATE [Concomitant]
  11. ROSIGLITAZONE [Concomitant]

REACTIONS (8)
  - CAPILLARY LEAK SYNDROME [None]
  - HYPOALBUMINAEMIA [None]
  - MALAISE [None]
  - OLIGURIA [None]
  - PLEURAL EFFUSION [None]
  - RED BLOOD CELL SCHISTOCYTES PRESENT [None]
  - RENAL FAILURE ACUTE [None]
  - THROMBOTIC THROMBOCYTOPENIC PURPURA [None]
